FAERS Safety Report 5884002-4 (Version None)
Quarter: 2008Q3

REPORT INFORMATION
  Report Type: 
  Country: None (occurrence: None)
  Receive Date: 20080915
  Receipt Date: 20080904
  Transmission Date: 20090109
  Serious: Yes (Hospitalization, Other)
  Sender: FDA-Public Use
  Company Number: GB-ASTRAZENECA-2007GB00669

PATIENT
  Age: 78 Year
  Sex: Female

DRUGS (17)
  1. OMEPRAZOLE [Suspect]
     Indication: DUODENITIS
     Route: 048
     Dates: start: 19980101, end: 20070101
  2. ADCAL-D3 [Concomitant]
     Indication: HYPOKALAEMIA
     Route: 048
  3. ASPIRIN [Concomitant]
  4. ATORVASTATIN [Concomitant]
  5. ATROVENT [Concomitant]
  6. BUMETANIDE [Concomitant]
     Route: 065
  7. ACETAMINOPHEN W/ CODEINE [Concomitant]
     Route: 065
  8. FUROSEMIDE [Concomitant]
     Route: 065
  9. GABAPENTIN [Concomitant]
     Indication: PAIN
     Route: 048
  10. NITROGLYCERIN [Concomitant]
  11. HYOSCINE HBR HYT [Concomitant]
     Route: 065
  12. IPRATROPIUM BROMIDE [Concomitant]
     Route: 065
  13. LOSARTAN POTASSIUM [Concomitant]
  14. QUININE SULPHATE [Concomitant]
     Indication: MUSCLE SPASMS
     Route: 048
  15. SALMETEROL [Concomitant]
     Route: 065
  16. SERETIDE [Concomitant]
  17. SPIRONOLACTONE [Concomitant]
     Route: 065

REACTIONS (7)
  - AGITATION [None]
  - HALLUCINATION [None]
  - HYPOCALCAEMIA [None]
  - HYPOKALAEMIA [None]
  - HYPOMAGNESAEMIA [None]
  - HYPOPHOSPHATAEMIA [None]
  - MUSCLE DISORDER [None]
